FAERS Safety Report 21604128 (Version 1)
Quarter: 2022Q4

REPORT INFORMATION
  Report Type: Report from Study
  Country: US (occurrence: US)
  Receive Date: 20221116
  Receipt Date: 20221116
  Transmission Date: 20230112
  Serious: No
  Sender: FDA-Public Use
  Company Number: US-ABBVIE-22K-163-4333516-00

PATIENT
  Age: 72 Year
  Sex: Female

DRUGS (4)
  1. SKYRIZI [Suspect]
     Active Substance: RISANKIZUMAB-RZAA
     Indication: Psoriasis
     Dosage: WEEK 0?FORM STRENGTH: 150 MILLIGRAM
     Route: 058
     Dates: start: 20220301, end: 20220301
  2. SKYRIZI [Suspect]
     Active Substance: RISANKIZUMAB-RZAA
     Dosage: WEEK 4 ?FORM STRENGTH: 150 MILLIGRAM
     Route: 058
     Dates: start: 20220401, end: 20220401
  3. SKYRIZI [Suspect]
     Active Substance: RISANKIZUMAB-RZAA
     Dosage: FORM STRENGTH: 150 MILLIGRAM
     Route: 058
     Dates: start: 20220624
  4. SKYRIZI [Suspect]
     Active Substance: RISANKIZUMAB-RZAA
     Indication: Psoriasis
     Dosage: LAST ADMIN DATE WAS 2022
     Route: 058
     Dates: start: 2022

REACTIONS (11)
  - Skin ulcer [Unknown]
  - Nasal congestion [Unknown]
  - Arthropod bite [Recovering/Resolving]
  - Alopecia [Recovering/Resolving]
  - Loss of personal independence in daily activities [Unknown]
  - Psoriasis [Recovered/Resolved]
  - Fatigue [Recovered/Resolved]
  - Psoriasis [Recovering/Resolving]
  - Nasopharyngitis [Recovered/Resolved]
  - Drug ineffective [Not Recovered/Not Resolved]
  - Upper respiratory tract infection [Recovered/Resolved]

NARRATIVE: CASE EVENT DATE: 20220301
